FAERS Safety Report 10709910 (Version 3)
Quarter: 2015Q2

REPORT INFORMATION
  Report Type: Spontaneous
  Country: JP (occurrence: JP)
  Receive Date: 20150114
  Receipt Date: 20150626
  Transmission Date: 20150821
  Serious: Yes (Disabling)
  Sender: FDA-Public Use
  Company Number: JP-ROCHE-1521112

PATIENT
  Age: 70 Year
  Sex: Female
  Weight: 44 kg

DRUGS (8)
  1. PERJETA [Suspect]
     Active Substance: PERTUZUMAB
     Indication: BREAST CANCER
     Dosage: PERJETA 420MG/14ML
     Route: 041
     Dates: start: 20140925, end: 20140925
  2. DOCETAXEL. [Suspect]
     Active Substance: DOCETAXEL
     Indication: BREAST CANCER
     Dosage: DOSAGE IS UNCERTAIN.?DOCETAXEL HYDRATE
     Route: 041
     Dates: start: 20140925, end: 20141218
  3. HERCEPTIN [Suspect]
     Active Substance: TRASTUZUMAB
     Route: 041
     Dates: start: 20141016, end: 20141218
  4. HERCEPTIN [Suspect]
     Active Substance: TRASTUZUMAB
     Indication: BREAST CANCER
     Route: 041
     Dates: start: 201111
  5. PERJETA [Suspect]
     Active Substance: PERTUZUMAB
     Dosage: PERJETA 420MG/14ML
     Route: 041
     Dates: start: 20141016, end: 20141218
  6. HERCEPTIN [Suspect]
     Active Substance: TRASTUZUMAB
     Route: 041
     Dates: start: 20140925, end: 20140925
  7. PYDOXAL [Concomitant]
     Active Substance: PYRIDOXAL
     Indication: PROPHYLAXIS
     Route: 048
  8. TSUMURA SHAKUYAKUKANZOTO [Concomitant]
     Active Substance: HERBALS
     Indication: PROPHYLAXIS
     Dosage: DOSAGE IS UNCERTAIN. ?SINGLE USE
     Route: 048

REACTIONS (1)
  - Interstitial lung disease [Recovered/Resolved with Sequelae]

NARRATIVE: CASE EVENT DATE: 20141228
